FAERS Safety Report 20756120 (Version 2)
Quarter: 2022Q2

REPORT INFORMATION
  Report Type: Spontaneous
  Country: US (occurrence: US)
  Receive Date: 20220427
  Receipt Date: 20220428
  Transmission Date: 20220721
  Serious: Yes (Death, Other)
  Sender: FDA-Public Use
  Company Number: US-ABBVIE-22K-163-4372037-00

PATIENT

DRUGS (1)
  1. RITONAVIR [Suspect]
     Active Substance: RITONAVIR
     Indication: Maternal exposure timing unspecified
     Route: 064
     Dates: start: 20140508, end: 20140712

REACTIONS (3)
  - Pyelocaliectasis [Fatal]
  - Hydronephrosis [Unknown]
  - Foetal exposure during pregnancy [Unknown]
